FAERS Safety Report 17054997 (Version 1)
Quarter: 2019Q4

REPORT INFORMATION
  Report Type: Spontaneous
  Country: US (occurrence: US)
  Receive Date: 20191120
  Receipt Date: 20191120
  Transmission Date: 20200122
  Serious: No
  Sender: FDA-Public Use
  Company Number: US-SA-2019SA321836

PATIENT
  Sex: Female

DRUGS (5)
  1. ASPIRIN [ACETYLSALICYLIC ACID] [Concomitant]
     Active Substance: ASPIRIN
  2. TYLENOL [Concomitant]
     Active Substance: ACETAMINOPHEN
  3. PLAVIX [Suspect]
     Active Substance: CLOPIDOGREL BISULFATE
  4. ELIQUIS [Suspect]
     Active Substance: APIXABAN
     Indication: DEEP VEIN THROMBOSIS
     Dosage: 5 MG
     Route: 048
     Dates: start: 201403
  5. ELIQUIS [Suspect]
     Active Substance: APIXABAN
     Dosage: 2.5 MG
     Route: 048

REACTIONS (2)
  - Headache [Unknown]
  - Contusion [Unknown]
